FAERS Safety Report 11732501 (Version 1)
Quarter: 2015Q4

REPORT INFORMATION
  Report Type: Spontaneous
  Country: HR (occurrence: HR)
  Receive Date: 20151113
  Receipt Date: 20151113
  Transmission Date: 20160304
  Serious: Yes (Other)
  Sender: FDA-Public Use
  Company Number: HR-ROCHE-1659883

PATIENT
  Age: 64 Year
  Sex: Female

DRUGS (3)
  1. SYNOPEN [Concomitant]
     Route: 042
  2. METILPREDNISOLONE [Concomitant]
     Active Substance: METHYLPREDNISOLONE
     Route: 042
  3. MABTHERA [Suspect]
     Active Substance: RITUXIMAB
     Indication: NON-HODGKIN^S LYMPHOMA
     Route: 048
     Dates: start: 20151009, end: 20151009

REACTIONS (2)
  - Aphasia [Recovered/Resolved]
  - Throat tightness [Recovered/Resolved]

NARRATIVE: CASE EVENT DATE: 20151009
